FAERS Safety Report 14535320 (Version 4)
Quarter: 2018Q1

REPORT INFORMATION
  Report Type: Spontaneous
  Country: HU (occurrence: HU)
  Receive Date: 20180215
  Receipt Date: 20180321
  Transmission Date: 20180509
  Serious: Yes (Death, Other)
  Sender: FDA-Public Use
  Company Number: HU-PFIZER INC-2018064918

PATIENT
  Age: 49 Year
  Sex: Female

DRUGS (2)
  1. METHYLPREDNISOLONE. [Concomitant]
     Active Substance: METHYLPREDNISOLONE
     Dosage: 8 MG, DAILY
  2. XELJANZ [Suspect]
     Active Substance: TOFACITINIB CITRATE
     Indication: RHEUMATOID ARTHRITIS
     Dosage: DAILY 2X1 TABLETS
     Route: 048
     Dates: start: 201710

REACTIONS (6)
  - Cardiac arrest [Fatal]
  - Cardiac failure [Fatal]
  - Cardiac infection [Fatal]
  - Hypotension [Unknown]
  - Sepsis [Fatal]
  - Rheumatoid nodule [Fatal]

NARRATIVE: CASE EVENT DATE: 20180110
